FAERS Safety Report 4315843-2 (Version None)
Quarter: 2004Q1

REPORT INFORMATION
  Report Type: 
  Country: None (occurrence: None)
  Receive Date: 20040310
  Receipt Date: 20040225
  Transmission Date: 20041129
  Serious: Yes (Hospitalization)
  Sender: FDA-Public Use
  Company Number: 2004CG00400

PATIENT
  Age: 58 Year
  Sex: Female

DRUGS (9)
  1. MOPRAL [Suspect]
     Indication: PREMEDICATION
     Dosage: 20 MG DAILY PO
     Route: 048
     Dates: start: 20040113, end: 20040113
  2. DIPRIVAN [Suspect]
     Indication: ANAESTHESIA
     Dates: start: 20040114, end: 20040114
  3. COLOPEG [Suspect]
     Indication: COLONOSCOPY
     Dates: start: 20040113, end: 20040113
  4. ATARAX [Suspect]
     Indication: PREMEDICATION
     Dosage: 100 MG DAILY PO
     Route: 048
     Dates: start: 20040113, end: 20040113
  5. ATROPINE [Suspect]
     Indication: ANAESTHESIA
     Dosage: 0.5 MG ONCE IV
     Route: 042
     Dates: start: 20040114, end: 20040114
  6. ZOCOR [Concomitant]
  7. LEXOMIL [Concomitant]
  8. DAIVONEX [Concomitant]
  9. ACETAMINOPHEN [Concomitant]

REACTIONS (1)
  - ACUTE GENERALISED EXANTHEMATOUS PUSTULOSIS [None]
